FAERS Safety Report 16216736 (Version 1)
Quarter: 2019Q2

REPORT INFORMATION
  Report Type: Spontaneous
  Country: US (occurrence: US)
  Receive Date: 20190419
  Receipt Date: 20190419
  Transmission Date: 20190711
  Serious: No
  Sender: FDA-Public Use
  Company Number: US-AMGEN-USASP2019059980

PATIENT
  Age: 52 Year
  Sex: Female

DRUGS (1)
  1. REPATHA [Suspect]
     Active Substance: EVOLOCUMAB
     Indication: PROPHYLAXIS
     Dosage: UNK, Q2WK
     Route: 065
     Dates: start: 20190329

REACTIONS (4)
  - Neck pain [Unknown]
  - Headache [Unknown]
  - Pyrexia [Unknown]
  - Back pain [Unknown]
